FAERS Safety Report 7202497-0 (Version None)
Quarter: 2010Q4

REPORT INFORMATION
  Report Type: 
  Country: None (occurrence: None)
  Receive Date: 20101229
  Receipt Date: 20101222
  Transmission Date: 20110411
  Serious: Yes (Life-Threatening, Hospitalization)
  Sender: FDA-Public Use
  Company Number: GXKR2009DE05734

PATIENT
  Age: 51 Year
  Sex: Female
  Weight: 92 kg

DRUGS (15)
  1. TORSEMIDE [Interacting]
     Indication: CARDIAC FAILURE
     Dosage: 1X100MG + 1X20 MG (2 IN DAY)
     Route: 048
     Dates: start: 20080701, end: 20080903
  2. TORSEMIDE [Interacting]
     Dosage: 20 MG, QD
     Dates: start: 20080301, end: 20080701
  3. PREDNISOLONE [Interacting]
     Indication: HYPEREOSINOPHILIC SYNDROME
     Dosage: 100 MG TO 30 MG  DAILY
     Route: 048
     Dates: start: 20080301
  4. ALBUTEROL [Suspect]
     Indication: ASTHMA
     Dosage: UNK
     Dates: start: 20080201
  5. AQUAPHOR TABLET [Suspect]
     Indication: CARDIAC FAILURE
     Dosage: 20 MG, QD
     Route: 048
     Dates: start: 20080301, end: 20080903
  6. ALDACTONE [Suspect]
     Indication: CARDIAC FAILURE
     Dosage: 50 MG, BID
     Route: 048
     Dates: start: 20080501, end: 20080902
  7. ALDACTONE [Suspect]
     Dosage: 25 MG/DAILY
     Dates: start: 20080903
  8. ROCALTROL [Concomitant]
     Indication: RENAL OSTEODYSTROPHY
     Dosage: Q
     Route: 048
     Dates: start: 20080301
  9. SYMBICORT [Concomitant]
     Indication: ASTHMA
  10. ASPIRIN [Concomitant]
     Indication: ENDOCARDITIS FIBROPLASTICA
     Dosage: 100 MG, QD
     Route: 048
     Dates: start: 20080301
  11. BISOPROLOL [Concomitant]
     Indication: CARDIAC FAILURE
     Dosage: 2.5 MG, QD
     Route: 048
     Dates: start: 20080601
  12. FALITHROM [Concomitant]
     Indication: THROMBOSIS PROPHYLAXIS
     Dosage: 3 MG, QD
     Route: 048
     Dates: start: 20080301, end: 20080903
  13. PANTOZOL [Concomitant]
     Indication: PROPHYLAXIS AGAINST GASTROINTESTINAL ULCER
     Dosage: 40 MG, QD
     Route: 048
     Dates: start: 20080201
  14. CALCILAC KT [Concomitant]
     Indication: RENAL OSTEODYSTROPHY
     Dosage: 500 MG, QD
     Route: 048
     Dates: start: 20080601
  15. MAGNESIUM VERLA TABLET [Concomitant]
     Dosage: UNK
     Route: 048
     Dates: start: 20080601

REACTIONS (3)
  - BLOOD POTASSIUM DECREASED [None]
  - BLOOD SODIUM DECREASED [None]
  - METABOLIC ALKALOSIS [None]
